FAERS Safety Report 16270132 (Version 3)
Quarter: 2019Q3

REPORT INFORMATION
  Report Type: Report from Study
  Country: US (occurrence: US)
  Receive Date: 20190503
  Receipt Date: 20190730
  Transmission Date: 20191004
  Serious: Yes (Other)
  Sender: FDA-Public Use
  Company Number: US-JNJFOC-20190414249

PATIENT
  Age: 86 Year
  Sex: Male

DRUGS (32)
  1. IMBRUVICA [Suspect]
     Active Substance: IBRUTINIB
     Route: 048
     Dates: start: 20180731, end: 20180814
  2. IMBRUVICA [Suspect]
     Active Substance: IBRUTINIB
     Indication: WALDENSTROM^S MACROGLOBULINAEMIA
     Route: 048
     Dates: start: 20180817, end: 20190424
  3. IMBRUVICA [Suspect]
     Active Substance: IBRUTINIB
     Route: 048
     Dates: start: 20181119
  4. CYANOCOBALAMIN. [Concomitant]
     Active Substance: CYANOCOBALAMIN
  5. VITAMIN D3 [Concomitant]
     Active Substance: CHOLECALCIFEROL
  6. LASIX [Concomitant]
     Active Substance: FUROSEMIDE
  7. BACLOFEN. [Suspect]
     Active Substance: BACLOFEN
     Indication: MUSCLE SPASMS
  8. PRAVASTATIN SODIUM. [Concomitant]
     Active Substance: PRAVASTATIN SODIUM
     Route: 065
  9. IMBRUVICA [Suspect]
     Active Substance: IBRUTINIB
     Route: 048
     Dates: start: 20180815, end: 20181009
  10. IMBRUVICA [Suspect]
     Active Substance: IBRUTINIB
     Route: 048
     Dates: start: 20190404
  11. MULTIVITAMIN WITH FLUORIDE [Concomitant]
     Active Substance: .ALPHA.-TOCOPHEROL\.ALPHA.-TOCOPHEROL ACETATE\.ALPHA.-TOCOPHEROL ACETATE, DL-\ASCORBIC ACID\CHOLECALCIFEROL\COBALAMIN\CYANOCOBALAMIN\FLUORIDE ION\FOLIC ACID\NIACIN\NIACINAMIDE\PYRIDOXINE\PYRIDOXINE HYDROCHLORIDE\RIBOFLAVIN\SODIUM ASCORBATE\SODIUM FLUORIDE\THIAMINE\THIAMINE MONONITRATE\VITAMIN A\VITA
  12. MAGNESIUM [Concomitant]
     Active Substance: MAGNESIUM
  13. PEPTO-BISMOL [Concomitant]
     Active Substance: BISMUTH SUBSALICYLATE
  14. IMBRUVICA [Suspect]
     Active Substance: IBRUTINIB
     Indication: WALDENSTROM^S MACROGLOBULINAEMIA
     Route: 048
     Dates: start: 20180424, end: 20180506
  15. IMBRUVICA [Suspect]
     Active Substance: IBRUTINIB
     Route: 048
     Dates: start: 20190425
  16. LISINOPRIL. [Concomitant]
     Active Substance: LISINOPRIL
  17. HUMALOG [Concomitant]
     Active Substance: INSULIN LISPRO
  18. LANTUS [Concomitant]
     Active Substance: INSULIN GLARGINE
  19. AZELASTINE. [Concomitant]
     Active Substance: AZELASTINE HYDROCHLORIDE
  20. ADVIL [Concomitant]
     Active Substance: IBUPROFEN
  21. PARACETAMOL [Concomitant]
     Active Substance: ACETAMINOPHEN
  22. PRESERVISION AREDS [Concomitant]
     Active Substance: MINERALS\VITAMINS
  23. IMBRUVICA [Suspect]
     Active Substance: IBRUTINIB
     Route: 048
     Dates: start: 20180517, end: 20180727
  24. COENZYME Q10 [Concomitant]
     Active Substance: UBIDECARENONE
  25. MELOXICAM. [Concomitant]
     Active Substance: MELOXICAM
  26. FISH OIL [Concomitant]
     Active Substance: FISH OIL
  27. IMBRUVICA [Suspect]
     Active Substance: IBRUTINIB
     Route: 048
     Dates: start: 20180424, end: 20180816
  28. IMBRUVICA [Suspect]
     Active Substance: IBRUTINIB
     Route: 048
     Dates: start: 20180421, end: 20180816
  29. PREDNISONE. [Concomitant]
     Active Substance: PREDNISONE
  30. ASPIRIN. [Concomitant]
     Active Substance: ASPIRIN
  31. OMEPRAZOLE. [Concomitant]
     Active Substance: OMEPRAZOLE
  32. ALEVE [Concomitant]
     Active Substance: NAPROXEN SODIUM

REACTIONS (28)
  - Visual impairment [Unknown]
  - Pain [Recovering/Resolving]
  - Blood immunoglobulin M increased [Unknown]
  - Urinary retention [Unknown]
  - Dyspnoea [Unknown]
  - Arthralgia [Unknown]
  - Nausea [Not Recovered/Not Resolved]
  - Decreased appetite [Unknown]
  - Muscle spasms [Recovered/Resolved]
  - Cough [Unknown]
  - Insomnia [Unknown]
  - Balance disorder [Unknown]
  - Morning sickness [Unknown]
  - Sinus congestion [Recovering/Resolving]
  - Withdrawal syndrome [Unknown]
  - Dizziness [Unknown]
  - Sinusitis [Recovered/Resolved]
  - Memory impairment [Unknown]
  - Depressed mood [Unknown]
  - Adverse event [Unknown]
  - Product dose omission [Unknown]
  - Lip swelling [Unknown]
  - Bladder pain [Unknown]
  - Neuropathy peripheral [Unknown]
  - Asthenia [Unknown]
  - Urine abnormality [Unknown]
  - Abdominal distension [Unknown]
  - Rash [Unknown]

NARRATIVE: CASE EVENT DATE: 201805
